FAERS Safety Report 16628317 (Version 1)
Quarter: 2019Q3

REPORT INFORMATION
  Report Type: Spontaneous
  Country: US (occurrence: US)
  Receive Date: 20190724
  Receipt Date: 20190724
  Transmission Date: 20191004
  Serious: Yes (Hospitalization, Disabling)
  Sender: FDA-Public Use
  Company Number: None

PATIENT
  Age: 45 Year
  Sex: Male
  Weight: 69.75 kg

DRUGS (5)
  1. MVI [Concomitant]
     Active Substance: VITAMINS
  2. LYRICA [Concomitant]
     Active Substance: PREGABALIN
  3. MOTRIN [Concomitant]
     Active Substance: IBUPROFEN
  4. COSENTYX [Suspect]
     Active Substance: SECUKINUMAB
     Indication: SPONDYLOARTHROPATHY
     Dosage: ?          QUANTITY:1 INJECTION(S);?
     Route: 058
     Dates: start: 20190519, end: 20190526
  5. LISINOPRIL 2.5 MG (1/2 TAB) [Concomitant]

REACTIONS (5)
  - Dizziness [None]
  - Uveitis [None]
  - Vision blurred [None]
  - Headache [None]
  - Muscular weakness [None]

NARRATIVE: CASE EVENT DATE: 20190712
